FAERS Safety Report 7370671-9 (Version None)
Quarter: 2011Q1

REPORT INFORMATION
  Report Type: 
  Country: None (occurrence: None)
  Receive Date: 20110323
  Receipt Date: 20110301
  Transmission Date: 20110831
  Serious: Yes (Other)
  Sender: FDA-Public Use
  Company Number: JP-BAYER-2011-011938

PATIENT
  Sex: Male

DRUGS (3)
  1. ASPIRIN [Suspect]
     Indication: BRAIN STEM INFARCTION
     Dosage: 100 MG, QD
     Route: 048
     Dates: start: 20050823, end: 20100107
  2. ASPIRIN [Suspect]
     Dosage: 100 MG, QD
     Route: 048
     Dates: start: 20110127, end: 20110128
  3. GASTER D [Concomitant]
     Dosage: 20 MG, UNK
     Route: 048
     Dates: start: 20050823

REACTIONS (2)
  - LARGE INTESTINAL HAEMORRHAGE [None]
  - MELAENA [None]
